FAERS Safety Report 8409150-6 (Version None)
Quarter: 2012Q2

REPORT INFORMATION
  Report Type: 
  Country: None (occurrence: None)
  Receive Date: 20120604
  Receipt Date: 20120530
  Transmission Date: 20120825
  Serious: Yes (Death, Other)
  Sender: FDA-Public Use
  Company Number: BR-ABBOTT-12P-020-0940067-00

PATIENT

DRUGS (1)
  1. DEPAKENE [Suspect]
     Indication: MATERNAL EXPOSURE TIMING UNSPECIFIED
     Route: 064

REACTIONS (3)
  - ULTRASOUND SCAN ABNORMAL [None]
  - DANDY-WALKER SYNDROME [None]
  - FOETAL EXPOSURE DURING PREGNANCY [None]
